FAERS Safety Report 6211255-5 (Version None)
Quarter: 2009Q2

REPORT INFORMATION
  Report Type: 
  Country: None (occurrence: None)
  Receive Date: 20090602
  Receipt Date: 20090526
  Transmission Date: 20091009
  Serious: Yes (Other)
  Sender: FDA-Public Use
  Company Number: US-JNJCH-2009014602

PATIENT
  Age: 60 Year
  Sex: Female
  Weight: 113.4 kg

DRUGS (4)
  1. ZYRTEC [Suspect]
     Indication: HYPERSENSITIVITY
     Route: 048
     Dates: start: 20090524, end: 20090525
  2. OTHER ANTIHYPERTENSIVES [Concomitant]
     Indication: HYPERTENSION
     Dosage: TEXT:UNSPECIFIED
     Route: 065
  3. LOPID [Concomitant]
     Indication: BLOOD CHOLESTEROL
     Dosage: TEXT:UNSPECIFIED
     Route: 065
  4. DIOVAN [Concomitant]
     Indication: BLOOD PRESSURE
     Dosage: TEXT:UNSPECIFIED
     Route: 065

REACTIONS (2)
  - DYSPNOEA [None]
  - ROAD TRAFFIC ACCIDENT [None]
